FAERS Safety Report 7040527-X (Version None)
Quarter: 2010Q4

REPORT INFORMATION
  Report Type: 
  Country: None (occurrence: None)
  Receive Date: 20101008
  Receipt Date: 20101008
  Transmission Date: 20110411
  Serious: Yes (Disabling)
  Sender: FDA-Public Use
  Company Number: None

PATIENT
  Age: 55 Year
  Sex: Female
  Weight: 49.8957 kg

DRUGS (1)
  1. AMPYRA [Suspect]
     Indication: SECONDARY PROGRESSIVE MULTIPLE SCLEROSIS
     Dosage: 10 MG EXTENDED RELEASE TABLETS 2X/DAY ~12 HRS APART.  SWALLOW WHOLE, NO CHEWING
     Route: 048
     Dates: start: 20100521, end: 20100722

REACTIONS (18)
  - ASTHENIA [None]
  - BALANCE DISORDER [None]
  - BURNING SENSATION [None]
  - CONSTIPATION [None]
  - DIZZINESS [None]
  - GAIT DISTURBANCE [None]
  - HEADACHE [None]
  - INSOMNIA [None]
  - MULTIPLE SCLEROSIS RELAPSE [None]
  - NASAL DISCOMFORT [None]
  - NAUSEA [None]
  - OROPHARYNGEAL PAIN [None]
  - PAIN [None]
  - PARAESTHESIA [None]
  - PRURITUS [None]
  - SENSORY DISTURBANCE [None]
  - THROAT IRRITATION [None]
  - URINARY TRACT INFECTION [None]
